FAERS Safety Report 6401584-4 (Version None)
Quarter: 2009Q4

REPORT INFORMATION
  Report Type: 
  Country: None (occurrence: None)
  Receive Date: 20091015
  Receipt Date: 20091012
  Transmission Date: 20100525
  Serious: Yes (Other)
  Sender: FDA-Public Use
  Company Number: AT-AVENTIS-200920451GDDC

PATIENT
  Age: 39 Year
  Sex: Female
  Weight: 78.3 kg

DRUGS (5)
  1. INSULIN GLULISINE [Suspect]
     Dosage: DOSE: BASAL INFUSION
     Dates: start: 20080305
  2. INSULIN PUMP NOS [Suspect]
  3. AERIUS                             /01398501/ [Concomitant]
     Dosage: DOSE QUANTITY: 1
     Route: 048
     Dates: start: 20071201
  4. NASONEX [Concomitant]
     Route: 045
     Dates: start: 20071201
  5. PARKEMED [Concomitant]
     Dates: start: 20081116, end: 20081101

REACTIONS (1)
  - KETOSIS [None]
